FAERS Safety Report 19118849 (Version 5)
Quarter: 2021Q4

REPORT INFORMATION
  Report Type: Spontaneous
  Country: JP (occurrence: JP)
  Receive Date: 20210409
  Receipt Date: 20211117
  Transmission Date: 20220303
  Serious: Yes (Life-Threatening, Hospitalization, Other)
  Sender: FDA-Public Use
  Company Number: JP-NBI-J202107264

PATIENT
  Age: 84 Year
  Sex: Female
  Weight: 52 kg

DRUGS (4)
  1. TELMISARTAN [Concomitant]
     Active Substance: TELMISARTAN
     Indication: Blood pressure increased
     Route: 048
     Dates: start: 20200720
  2. OFEV [Suspect]
     Active Substance: NINTEDANIB
     Indication: Idiopathic interstitial pneumonia
     Route: 048
     Dates: start: 20161205
  3. OFEV [Suspect]
     Active Substance: NINTEDANIB
     Route: 048
     Dates: start: 20170724
  4. OFEV [Suspect]
     Active Substance: NINTEDANIB
     Route: 048
     Dates: start: 20210226

REACTIONS (2)
  - Aortic dissection [Recovered/Resolved]
  - Bile duct cancer [Not Recovered/Not Resolved]

NARRATIVE: CASE EVENT DATE: 20200826
